FAERS Safety Report 8455580-6 (Version None)
Quarter: 2012Q2

REPORT INFORMATION
  Report Type: 
  Country: None (occurrence: None)
  Receive Date: 20120621
  Receipt Date: 20120611
  Transmission Date: 20120825
  Serious: Yes (Death, Hospitalization)
  Sender: FDA-Public Use
  Company Number: US-VERTEX PHARMACEUTICALS INC.-AE-2012-008633

PATIENT
  Age: 58 Year
  Sex: Female
  Weight: 98.972 kg

DRUGS (3)
  1. INCIVEK [Suspect]
     Indication: HEPATITIS C
     Route: 048
  2. PEGASYS [Concomitant]
     Indication: HEPATITIS C
  3. RIBAVIRIN [Concomitant]
     Indication: HEPATITIS C

REACTIONS (8)
  - ANAEMIA [None]
  - RENAL FAILURE [None]
  - SEPSIS [None]
  - PANCYTOPENIA [None]
  - HEPATIC FAILURE [None]
  - PYREXIA [None]
  - MONOCYTOSIS [None]
  - NEUTROPENIA [None]
